FAERS Safety Report 24210941 (Version 3)
Quarter: 2024Q3

REPORT INFORMATION
  Report Type: Spontaneous
  Country: US (occurrence: US)
  Receive Date: 20240814
  Receipt Date: 20240923
  Transmission Date: 20241016
  Serious: No
  Sender: PFIZER
  Company Number: US-PFIZER INC-202400234515

PATIENT
  Age: 10 Year
  Sex: Female
  Weight: 24.49 kg

DRUGS (1)
  1. GENOTROPIN [Suspect]
     Active Substance: SOMATROPIN
     Indication: Short stature
     Dosage: 0.7 MG, DAILY

REACTIONS (3)
  - Poor quality device used [Unknown]
  - Device breakage [Unknown]
  - Drug dose omission by device [Unknown]
